FAERS Safety Report 8347654-5 (Version None)
Quarter: 2012Q2

REPORT INFORMATION
  Report Type: 
  Country: None (occurrence: None)
  Receive Date: 20120509
  Receipt Date: 20101018
  Transmission Date: 20120825
  Serious: Yes (Life-Threatening, Hospitalization, Other)
  Sender: FDA-Public Use
  Company Number: CN-ALLERGAN-1017078US

PATIENT
  Age: 25 Year
  Sex: Female

DRUGS (1)
  1. BOTULINUM TOXIN TYPE A [Suspect]
     Indication: SKIN WRINKLING
     Dosage: UNK
     Route: 030

REACTIONS (5)
  - BOTULISM [None]
  - MUSCULAR WEAKNESS [None]
  - LOSS OF CONSCIOUSNESS [None]
  - DYSPHAGIA [None]
  - RESPIRATORY MUSCLE WEAKNESS [None]
